FAERS Safety Report 11252284 (Version 1)
Quarter: 2015Q3

REPORT INFORMATION
  Report Type: Spontaneous
  Country: US (occurrence: US)
  Receive Date: 20150708
  Receipt Date: 20150708
  Transmission Date: 20151125
  Serious: No
  Sender: FDA-Public Use
  Company Number: US-ELI_LILLY_AND_COMPANY-US201308008117

PATIENT
  Sex: Male
  Weight: 83.81 kg

DRUGS (6)
  1. EMEND [Concomitant]
     Active Substance: APREPITANT
  2. FLUOROURACIL. [Suspect]
     Active Substance: FLUOROURACIL
     Dosage: UNK
     Dates: start: 20080522, end: 20080825
  3. LOPERAMIDE [Concomitant]
     Active Substance: LOPERAMIDE
  4. ONDANSETRON [Concomitant]
     Active Substance: ONDANSETRON
  5. GEMZAR [Suspect]
     Active Substance: GEMCITABINE HYDROCHLORIDE
     Indication: PANCREATIC CARCINOMA
     Dosage: 1700 MG, WEEKLY (1/W)
     Route: 042
     Dates: start: 20080714, end: 20080730
  6. DEXAMETHASONE. [Concomitant]
     Active Substance: DEXAMETHASONE

REACTIONS (5)
  - Ocular discomfort [Recovered/Resolved]
  - Diarrhoea [Recovered/Resolved]
  - Scleral hyperaemia [Recovered/Resolved]
  - Rash maculo-papular [Recovered/Resolved]
  - Asthenia [Recovered/Resolved]
